FAERS Safety Report 24215635 (Version 1)
Quarter: 2024Q3

REPORT INFORMATION
  Report Type: Spontaneous
  Country: US (occurrence: None)
  Receive Date: 20240816
  Receipt Date: 20240816
  Transmission Date: 20241017
  Serious: Yes (Other)
  Sender: ASTRAZENECA
  Company Number: 2024A183934

PATIENT
  Age: 51 Year
  Sex: Female

DRUGS (8)
  1. QUETIAPINE [Suspect]
     Active Substance: QUETIAPINE
     Indication: Schizophrenia
     Dosage: 50 MG IN THE MORNING AND 450 MG NIGHTLY
     Route: 048
  2. QUETIAPINE [Suspect]
     Active Substance: QUETIAPINE
     Indication: Schizophrenia
     Route: 048
  3. LEVOFLOXACIN [Concomitant]
     Active Substance: LEVOFLOXACIN
     Indication: Urinary tract infection
  4. LEVOFLOXACIN [Concomitant]
     Active Substance: LEVOFLOXACIN
     Indication: Staphylococcal bacteraemia
  5. VANCOMYCIN [Concomitant]
     Active Substance: VANCOMYCIN
     Indication: Urinary tract infection
     Route: 042
  6. VANCOMYCIN [Concomitant]
     Active Substance: VANCOMYCIN
     Indication: Staphylococcal bacteraemia
     Route: 042
  7. LORAZEPAM [Concomitant]
     Active Substance: LORAZEPAM
     Indication: Malignant catatonia
     Dosage: 1.0MG ONCE/SINGLE ADMINISTRATION
     Route: 030
  8. LORAZEPAM [Concomitant]
     Active Substance: LORAZEPAM
     Indication: Malignant catatonia
     Dosage: 6.0MG ONCE/SINGLE ADMINISTRATION
     Route: 030

REACTIONS (1)
  - Electrocardiogram QT prolonged [Unknown]
